FAERS Safety Report 11768048 (Version 1)
Quarter: 2015Q4

REPORT INFORMATION
  Report Type: Spontaneous
  Country: US (occurrence: US)
  Receive Date: 20151123
  Receipt Date: 20151123
  Transmission Date: 20160304
  Serious: No
  Sender: FDA-Public Use
  Company Number: US-JNJFOC-20151007980

PATIENT
  Age: 67 Year
  Sex: Female
  Weight: 71.67 kg

DRUGS (2)
  1. ZYRTEC [Suspect]
     Active Substance: CETIRIZINE HYDROCHLORIDE
     Route: 048
  2. ZYRTEC [Suspect]
     Active Substance: CETIRIZINE HYDROCHLORIDE
     Indication: SEASONAL ALLERGY
     Dosage: TOOK THE FIRST TABLET AT 10:30AM AND THE??SECOND A LITTLE BEFORE 12
     Route: 048
     Dates: start: 20151009

REACTIONS (3)
  - Wrong patient received medication [Unknown]
  - Product lot number issue [Unknown]
  - Accidental overdose [Unknown]

NARRATIVE: CASE EVENT DATE: 20151009
